FAERS Safety Report 10296846 (Version 1)
Quarter: 2014Q3

REPORT INFORMATION
  Report Type: Spontaneous
  Country: US (occurrence: None)
  Receive Date: 20140708
  Receipt Date: 20140708
  Transmission Date: 20150326
  Serious: Yes (Hospitalization)
  Sender: FDA-Public Use
  Company Number: None

PATIENT
  Age: 75 Year
  Sex: Female
  Weight: 64.9 kg

DRUGS (1)
  1. XELODA [Suspect]
     Active Substance: CAPECITABINE
     Dosage: TOTAL DOSE ADMINISTERED
     Dates: end: 20140530

REACTIONS (10)
  - Diarrhoea [None]
  - Haematocrit decreased [None]
  - Vomiting [None]
  - Dizziness [None]
  - Nausea [None]
  - Fatigue [None]
  - Haemoglobin decreased [None]
  - Weight decreased [None]
  - Blood potassium decreased [None]
  - Blood calcium decreased [None]

NARRATIVE: CASE EVENT DATE: 20140625
